FAERS Safety Report 7125133-0 (Version None)
Quarter: 2010Q4

REPORT INFORMATION
  Report Type: 
  Country: None (occurrence: None)
  Receive Date: 20101129
  Receipt Date: 20101019
  Transmission Date: 20110411
  Serious: Yes (Hospitalization)
  Sender: FDA-Public Use
  Company Number: US-AMGEN-USASP2010002149

PATIENT

DRUGS (4)
  1. PROCRIT [Suspect]
     Indication: ANAEMIA
     Dosage: UNK UNK, QWK
     Route: 058
     Dates: start: 19900101
  2. EPOGEN [Suspect]
     Indication: ANAEMIA
     Dosage: UNK UNK, QWK
     Route: 058
     Dates: start: 19850101, end: 19900101
  3. LOPRESSOR [Concomitant]
     Indication: BLOOD CHOLESTEROL INCREASED
     Dosage: 50 MG, BID
     Route: 048
  4. LOVASTATIN [Concomitant]
     Indication: HYPERTENSION
     Dosage: 20 MG, QD
     Route: 048

REACTIONS (8)
  - BLOOD CREATININE INCREASED [None]
  - BLOOD PARATHYROID HORMONE ABNORMAL [None]
  - DECREASED APPETITE [None]
  - HEADACHE [None]
  - HOSPITALISATION [None]
  - NEPHROPATHY [None]
  - OSTEONECROSIS [None]
  - VITAMIN D DECREASED [None]
